FAERS Safety Report 13250234 (Version 3)
Quarter: 2017Q2

REPORT INFORMATION
  Report Type: Spontaneous
  Country: JP (occurrence: JP)
  Receive Date: 20170218
  Receipt Date: 20170416
  Transmission Date: 20170830
  Serious: Yes (Other)
  Sender: FDA-Public Use
  Company Number: JP-AMGEN-JPNSP2017025711

PATIENT
  Age: 69 Year
  Sex: Female
  Weight: 67 kg

DRUGS (6)
  1. TS-1 [Concomitant]
     Active Substance: GIMERACIL\OTERACIL\TEGAFUR
     Dosage: 100 MG, QD
     Route: 048
     Dates: start: 201609
  2. METHYCOBAL [Concomitant]
     Active Substance: METHYLCOBALAMIN
     Dosage: 500 MUG, TID
     Route: 048
  3. RANMARK [Suspect]
     Active Substance: DENOSUMAB
     Indication: METASTASES TO BONE
     Dosage: 120 MG, Q4WK
     Route: 058
     Dates: start: 20150130
  4. TAMOXIFEN [Concomitant]
     Active Substance: TAMOXIFEN
     Dosage: 20 MG, QD
     Route: 048
     Dates: start: 201609
  5. PYDOXAL [Concomitant]
     Active Substance: PYRIDOXAL
     Dosage: 20 MG, TID
     Route: 048
  6. ONEALFA [Concomitant]
     Active Substance: ALFACALCIDOL
     Dosage: 1 MUG, QD
     Route: 048
     Dates: start: 20150130

REACTIONS (1)
  - Osteonecrosis of jaw [Not Recovered/Not Resolved]

NARRATIVE: CASE EVENT DATE: 20160428
